FAERS Safety Report 24067157 (Version 3)
Quarter: 2024Q3

REPORT INFORMATION
  Report Type: Spontaneous
  Country: US (occurrence: US)
  Receive Date: 20240709
  Receipt Date: 20240908
  Transmission Date: 20241017
  Serious: Yes (Other)
  Sender: ROCHE
  Company Number: US-ROCHE-10000014979

PATIENT
  Age: 53 Year
  Sex: Female
  Weight: 109.77 kg

DRUGS (7)
  1. OCRELIZUMAB [Suspect]
     Active Substance: OCRELIZUMAB
     Indication: Relapsing-remitting multiple sclerosis
     Dosage: ON 02-MAY-2023 ANOTHER INFUSION OF 300 MG WAS GIVEN AND ON 27-OCT-2023, 600 MG WHICH WAS THE MOST RE
     Route: 042
     Dates: start: 20230418, end: 20231027
  2. VITAMIN D3 [Concomitant]
     Active Substance: CHOLECALCIFEROL
     Indication: Multiple sclerosis
     Dosage: DOSE STATED AS ^5000 UNITS^
     Route: 048
  3. VITAMIN B12 [Concomitant]
     Active Substance: CYANOCOBALAMIN
     Indication: Vitamin B12 deficiency
     Route: 048
  4. GABAPENTIN [Concomitant]
     Active Substance: GABAPENTIN
     Indication: Neuralgia
     Route: 048
  5. LORAZEPAM [Concomitant]
     Active Substance: LORAZEPAM
     Route: 048
  6. SCOPOLAMINE [Concomitant]
     Active Substance: SCOPOLAMINE
  7. XIFAXAN [Concomitant]
     Active Substance: RIFAXIMIN
     Route: 048

REACTIONS (1)
  - Breast cancer [Not Recovered/Not Resolved]

NARRATIVE: CASE EVENT DATE: 20240320
